FAERS Safety Report 22607895 (Version 1)
Quarter: 2023Q2

REPORT INFORMATION
  Report Type: Spontaneous
  Country: US (occurrence: US)
  Receive Date: 20230616
  Receipt Date: 20230616
  Transmission Date: 20230721
  Serious: No
  Sender: FDA-Public Use
  Company Number: US-CIPLA LTD.-2023US01750

PATIENT

DRUGS (1)
  1. WARFARIN [Suspect]
     Active Substance: WARFARIN
     Indication: Product used for unknown indication
     Dosage: 20 MILLIGRAM, WEEKLY (3 MG FOR 5 DAYS A WEEK AND 2.5 MG FOR 2 DAYS A WEEK)
     Route: 065
     Dates: start: 20230306

REACTIONS (2)
  - Recalled product administered [Unknown]
  - Product impurity [Unknown]

NARRATIVE: CASE EVENT DATE: 20230101
